FAERS Safety Report 9100018 (Version 1)
Quarter: 2013Q1

REPORT INFORMATION
  Report Type: Spontaneous
  Country: US (occurrence: US)
  Receive Date: 20130215
  Receipt Date: 20130215
  Transmission Date: 20140127
  Serious: No
  Sender: FDA-Public Use
  Company Number: US-PFIZER INC-2013057052

PATIENT
  Age: 55 Year
  Sex: Male
  Weight: 75.74 kg

DRUGS (4)
  1. CELEBREX [Suspect]
     Indication: SKIN CANCER
     Dosage: 200 MG, 1X/DAY
     Route: 048
     Dates: start: 201212
  2. CELEBREX [Suspect]
     Dosage: 100 MG, 2X/DAY
     Route: 048
     Dates: end: 201301
  3. ZELBORAF [Concomitant]
     Indication: SKIN CANCER
     Dosage: UNK
  4. LEVETIRACETAM [Concomitant]
     Indication: CONVULSION
     Dosage: 500 MG, UNK

REACTIONS (2)
  - Off label use [Unknown]
  - Diarrhoea [Unknown]
